FAERS Safety Report 4279487-3 (Version None)
Quarter: 2004Q1

REPORT INFORMATION
  Report Type: 
  Country: None (occurrence: None)
  Receive Date: 20040126
  Receipt Date: 20040126
  Transmission Date: 20041129
  Serious: No
  Sender: FDA-Public Use
  Company Number: None

PATIENT
  Sex: Female
  Weight: 68.0396 kg

DRUGS (2)
  1. ACTONEL [Suspect]
     Indication: RASH
     Dosage: DAILY
  2. ACTONEL [Suspect]
     Indication: TINNITUS
     Dosage: DAILY

REACTIONS (3)
  - RASH [None]
  - TINNITUS [None]
  - TREMOR [None]
